FAERS Safety Report 25331046 (Version 1)
Quarter: 2025Q2

REPORT INFORMATION
  Report Type: Spontaneous
  Country: US (occurrence: None)
  Receive Date: 20250516
  Receipt Date: 20250516
  Transmission Date: 20250716
  Serious: Yes (Disabling)
  Sender: FDA-CTU
  Company Number: None

PATIENT
  Age: 72 Year
  Sex: Male
  Weight: 87.5 kg

DRUGS (1)
  1. WARFARIN [Suspect]
     Active Substance: WARFARIN
     Route: 048
     Dates: start: 20231101, end: 20250226

REACTIONS (7)
  - Fall [None]
  - Cerebral haemorrhage [None]
  - International normalised ratio increased [None]
  - Mental status changes [None]
  - Hypotension [None]
  - Hypertension [None]
  - Cerebral mass effect [None]

NARRATIVE: CASE EVENT DATE: 20250226
